FAERS Safety Report 5817356-5 (Version None)
Quarter: 2008Q3

REPORT INFORMATION
  Report Type: 
  Country: None (occurrence: None)
  Receive Date: 20080715
  Receipt Date: 20080703
  Transmission Date: 20090109
  Serious: Yes (Hospitalization)
  Sender: FDA-Public Use
  Company Number: 107#03#2008#03512

PATIENT
  Age: 44 Year
  Sex: Male

DRUGS (1)
  1. MIRTAZAPINE [Suspect]
     Indication: DEPRESSION
     Dosage: 30 MG (FOR 3 DAYS 60 MG BY HIS OWN DECISION); ORAL
     Route: 048
     Dates: start: 20070701, end: 20080618

REACTIONS (3)
  - INCORRECT DOSE ADMINISTERED [None]
  - MYALGIA [None]
  - PAIN IN EXTREMITY [None]
